FAERS Safety Report 6894651-2 (Version None)
Quarter: 2010Q3

REPORT INFORMATION
  Report Type: 
  Country: None (occurrence: None)
  Receive Date: 20100802
  Receipt Date: 20100721
  Transmission Date: 20110219
  Serious: Yes (Hospitalization)
  Sender: FDA-Public Use
  Company Number: JP-PFIZER INC-2010093624

PATIENT
  Age: 66 Year
  Sex: Male
  Weight: 54 kg

DRUGS (14)
  1. ALDACTONE [Suspect]
     Route: 065
  2. EVAMYL [Suspect]
     Route: 065
  3. EURODIN [Suspect]
     Route: 065
  4. SERENACE [Suspect]
     Route: 065
  5. TAGAMET HB [Suspect]
     Route: 065
  6. URSO 250 [Suspect]
     Route: 065
  7. OPALMON [Suspect]
     Route: 065
  8. LASIX [Suspect]
     Route: 065
  9. LOXONIN [Suspect]
     Route: 065
  10. VOLTAREN [Suspect]
     Route: 065
  11. CALONAL [Suspect]
     Route: 065
  12. VANCOMYCIN [Suspect]
     Route: 065
  13. IMIPENEM [Suspect]
     Route: 065
  14. GLYCERIN [Suspect]
     Route: 065

REACTIONS (16)
  - ACTIVATED PARTIAL THROMBOPLASTIN TIME PROLONGED [None]
  - ANAEMIA [None]
  - CANDIDA TEST POSITIVE [None]
  - CHEILITIS [None]
  - HAEMORRHAGE [None]
  - HEPATIC ENZYME INCREASED [None]
  - HYPOALBUMINAEMIA [None]
  - HYPOXIA [None]
  - IMMUNOGLOBULINS INCREASED [None]
  - JOINT CONTRACTURE [None]
  - PANCYTOPENIA [None]
  - PNEUMONIA [None]
  - STAPHYLOCOCCAL SEPSIS [None]
  - STOMATITIS [None]
  - STREPTOCOCCUS TEST POSITIVE [None]
  - TOXIC EPIDERMAL NECROLYSIS [None]
